FAERS Safety Report 13427363 (Version 4)
Quarter: 2017Q2

REPORT INFORMATION
  Report Type: Spontaneous
  Country: US (occurrence: US)
  Receive Date: 20170411
  Receipt Date: 20170612
  Transmission Date: 20170830
  Serious: No
  Sender: FDA-Public Use
  Company Number: US-GLAXOSMITHKLINE-US2017050433

PATIENT
  Sex: Female
  Weight: 131.7 kg

DRUGS (1)
  1. VENTOLIN HFA [Suspect]
     Active Substance: ALBUTEROL SULFATE
     Indication: PRODUCT USED FOR UNKNOWN INDICATION
     Dosage: 2 PUFF(S), EVERY 6-8 HOURS PRN
     Route: 055

REACTIONS (5)
  - Nocturnal dyspnoea [Unknown]
  - Cough [Unknown]
  - Fatigue [Unknown]
  - Tachycardia [Unknown]
  - Product use issue [Unknown]
